FAERS Safety Report 22125853 (Version 1)
Quarter: 2023Q1

REPORT INFORMATION
  Report Type: Spontaneous
  Country: DE (occurrence: DE)
  Receive Date: 20230322
  Receipt Date: 20230322
  Transmission Date: 20230418
  Serious: Yes (Hospitalization, Other)
  Sender: FDA-Public Use
  Company Number: DE-ViiV Healthcare Limited-DE2023GSK040293

PATIENT

DRUGS (4)
  1. ZIDOVUDINE [Suspect]
     Active Substance: ZIDOVUDINE
     Indication: HIV infection
     Dosage: UNK
  2. DOLUTEGRAVIR [Suspect]
     Active Substance: DOLUTEGRAVIR
     Indication: HIV infection
     Dosage: UNK
  3. NEVIRAPINE [Suspect]
     Active Substance: NEVIRAPINE
     Indication: HIV infection
  4. GANCICLOVIR [Suspect]
     Active Substance: GANCICLOVIR
     Indication: Antiviral treatment
     Dosage: UNK UNK, BID
     Route: 042

REACTIONS (13)
  - Retinal vasculitis [Recovering/Resolving]
  - Immune reconstitution inflammatory syndrome [Recovering/Resolving]
  - Immune recovery uveitis [Unknown]
  - Visual impairment [Recovering/Resolving]
  - Headache [Recovering/Resolving]
  - Photophobia [Recovering/Resolving]
  - Cytomegalovirus chorioretinitis [Recovered/Resolved]
  - Retinal oedema [Recovered/Resolved]
  - Macular oedema [Recovered/Resolved]
  - Blindness unilateral [Recovering/Resolving]
  - Retinal haemorrhage [Recovering/Resolving]
  - Retinal perivascular sheathing [Recovering/Resolving]
  - Cytomegalovirus infection reactivation [Recovering/Resolving]
